FAERS Safety Report 4906297-3 (Version None)
Quarter: 2006Q1

REPORT INFORMATION
  Report Type: 
  Country: None (occurrence: None)
  Receive Date: 20060206
  Receipt Date: 20060127
  Transmission Date: 20060701
  Serious: Yes (Death)
  Sender: FDA-Public Use
  Company Number: 220581

PATIENT
  Age: 56 Year
  Sex: Male

DRUGS (4)
  1. ACTIVACIN (ALTEPLASE)PWDR + SOLVENT, INFUSION SOLN [Suspect]
     Indication: CEREBRAL ISCHAEMIA
     Dosage: 41.37 MG, INTRAVENOUS
     Route: 042
     Dates: start: 20051109, end: 20051109
  2. EDARAVONE (EDARAVONE) [Concomitant]
  3. GLYCEOL (GLYCERIN) [Concomitant]
  4. MANNITOL [Concomitant]

REACTIONS (5)
  - BRAIN OEDEMA [None]
  - CONDITION AGGRAVATED [None]
  - DEPRESSED LEVEL OF CONSCIOUSNESS [None]
  - HYPERTENSION [None]
  - SOMNOLENCE [None]
